FAERS Safety Report 12371438 (Version 3)
Quarter: 2016Q2

REPORT INFORMATION
  Report Type: Report from Study
  Country: CA (occurrence: CA)
  Receive Date: 20160516
  Receipt Date: 20160530
  Transmission Date: 20160815
  Serious: Yes (Hospitalization, Other)
  Sender: FDA-Public Use
  Company Number: CA-009507513-1605CAN005083

PATIENT
  Age: 63 Year
  Sex: Male
  Weight: 71.3 kg

DRUGS (1)
  1. PEMBROLIZUMAB. [Suspect]
     Active Substance: PEMBROLIZUMAB
     Indication: METASTATIC MALIGNANT MELANOMA
     Dosage: 134 MG, Q3W
     Route: 042
     Dates: start: 20160506, end: 20160527

REACTIONS (5)
  - Drug-induced liver injury [Unknown]
  - Vein collapse [Unknown]
  - Pruritus [Unknown]
  - Fatigue [Unknown]
  - Fatigue [Unknown]

NARRATIVE: CASE EVENT DATE: 20160506
